FAERS Safety Report 14088812 (Version 8)
Quarter: 2018Q2

REPORT INFORMATION
  Report Type: Report from Study
  Country: DE (occurrence: DE)
  Receive Date: 20171013
  Receipt Date: 20180503
  Transmission Date: 20180711
  Serious: Yes (Hospitalization)
  Sender: FDA-Public Use
  Company Number: DE-EISAI MEDICAL RESEARCH-EC-2017-029619

PATIENT
  Age: 77 Year
  Sex: Female
  Weight: 70.4 kg

DRUGS (1)
  1. HALAVEN [Suspect]
     Active Substance: ERIBULIN MESYLATE
     Indication: BREAST CANCER METASTATIC
     Route: 041
     Dates: start: 20170714, end: 20171006

REACTIONS (10)
  - General physical health deterioration [Recovered/Resolved]
  - Fatigue [Recovered/Resolved]
  - Eye pain [Not Recovered/Not Resolved]
  - Ophthalmic herpes zoster [Recovering/Resolving]
  - Peripheral sensory neuropathy [Recovered/Resolved]
  - Vaginal haemorrhage [Recovered/Resolved]
  - Dyspnoea [Recovering/Resolving]
  - Dry eye [Recovered/Resolved]
  - Pain [Not Recovered/Not Resolved]
  - Pleural effusion [Not Recovered/Not Resolved]

NARRATIVE: CASE EVENT DATE: 20170715
